FAERS Safety Report 7440722-1 (Version None)
Quarter: 2011Q2

REPORT INFORMATION
  Report Type: 
  Country: None (occurrence: None)
  Receive Date: 20110427
  Receipt Date: 20110425
  Transmission Date: 20111010
  Serious: Yes (Death, Hospitalization, Other)
  Sender: FDA-Public Use
  Company Number: US-AMGEN-QUU422600

PATIENT
  Age: 90 Year
  Sex: Male
  Weight: 78.9 kg

DRUGS (3)
  1. UNSPECIFIED MEDICATION [Concomitant]
  2. NPLATE [Suspect]
     Indication: IDIOPATHIC THROMBOCYTOPENIC PURPURA
     Dosage: 800 A?G, QWK
     Route: 058
     Dates: start: 20091021, end: 20110207
  3. FELODIPINE [Concomitant]

REACTIONS (8)
  - PLATELET COUNT DECREASED [None]
  - SKIN DISCOLOURATION [None]
  - OEDEMA PERIPHERAL [None]
  - RETROPERITONEAL HAEMORRHAGE [None]
  - THROMBOCYTOPENIA [None]
  - DISEASE PROGRESSION [None]
  - MYELODYSPLASTIC SYNDROME [None]
  - TREATMENT NONCOMPLIANCE [None]
